FAERS Safety Report 21339490 (Version 1)
Quarter: 2022Q3

REPORT INFORMATION
  Report Type: Spontaneous
  Country: US (occurrence: US)
  Receive Date: 20220915
  Receipt Date: 20220915
  Transmission Date: 20221026
  Serious: No
  Sender: FDA-Public Use
  Company Number: US-SA-SAC20220909001124

PATIENT
  Age: 46 Year
  Sex: Female
  Weight: 74.38 kg

DRUGS (16)
  1. DUPIXENT [Suspect]
     Active Substance: DUPILUMAB
     Indication: Dermatitis atopic
     Dosage: 300MG, QOW
     Route: 058
     Dates: start: 20220711
  2. ACIPHEX [Concomitant]
     Active Substance: RABEPRAZOLE SODIUM
  3. CLOBETASOL PROPIONATE [Concomitant]
     Active Substance: CLOBETASOL PROPIONATE
  4. CORDRAN [Concomitant]
     Active Substance: FLURANDRENOLIDE
  5. DUOBRII [Concomitant]
     Active Substance: HALOBETASOL PROPIONATE\TAZAROTENE
  6. FISH OIL [Concomitant]
     Active Substance: FISH OIL
  7. LEVOTHYROXINE [Concomitant]
     Active Substance: LEVOTHYROXINE
  8. PRAMOXINE HYDROCHLORIDE [Concomitant]
     Active Substance: PRAMOXINE HYDROCHLORIDE
  9. VITAMIN D3 [Concomitant]
     Active Substance: CHOLECALCIFEROL
  10. WINLEVI [Concomitant]
     Active Substance: CLASCOTERONE
  11. ZYRTEC [Concomitant]
     Active Substance: CETIRIZINE HYDROCHLORIDE
  12. HELIOCARE [Concomitant]
  13. DEVICE [Concomitant]
     Active Substance: DEVICE
  14. TRI-LUMA [Concomitant]
     Active Substance: FLUOCINOLONE ACETONIDE\HYDROQUINONE\TRETINOIN
  15. VITAMINS NOS [Concomitant]
     Active Substance: VITAMINS
  16. ULTRAVATE [BETAMETHASONE DIPROPIONATE] [Concomitant]

REACTIONS (2)
  - Pruritus [Unknown]
  - Therapeutic response decreased [Unknown]
